FAERS Safety Report 26045418 (Version 1)
Quarter: 2025Q4

REPORT INFORMATION
  Report Type: Spontaneous
  Country: TW (occurrence: TW)
  Receive Date: 20251114
  Receipt Date: 20251114
  Transmission Date: 20260118
  Serious: Yes (Life-Threatening, Hospitalization)
  Sender: MACLEODS
  Company Number: TW-MACLEODS PHARMA-MAC2025056327

PATIENT

DRUGS (4)
  1. LIDOCAINE [Suspect]
     Active Substance: LIDOCAINE
     Indication: Product used for unknown indication
     Dosage: LDC 555 MG, INGESTION,  TOPICAL
     Route: 065
  2. PREDNISOLONE [Suspect]
     Active Substance: PREDNISOLONE
     Indication: Product used for unknown indication
     Dosage: 23 MG, 2.67MG/KG
     Route: 065
  3. CHLORPHENIRAMINE MALEATE [Suspect]
     Active Substance: CHLORPHENIRAMINE MALEATE
     Indication: Product used for unknown indication
     Dosage: ESTIMATED INGESTED: 185 MG, ESTIMATED DOSE: 21.5 MG/KG AND TOXICITY RATING: 5
     Route: 065
  4. METHYL SALICYLATE [Suspect]
     Active Substance: METHYL SALICYLATE
     Indication: Product used for unknown indication
     Dosage: ESTIMATED INGESTED 92.5 MG, 10.8 MG/KG
     Route: 065

REACTIONS (9)
  - Local anaesthetic systemic toxicity [Recovered/Resolved]
  - Coma [Recovered/Resolved]
  - Cyanosis [Recovered/Resolved]
  - Generalised tonic-clonic seizure [Recovered/Resolved]
  - Sinus tachycardia [Recovered/Resolved]
  - Toxicity to various agents [Recovered/Resolved]
  - Encephalopathy [Recovered/Resolved]
  - Overdose [Unknown]
  - Accidental exposure to product by child [Unknown]
